FAERS Safety Report 5767360-0 (Version None)
Quarter: 2008Q2

REPORT INFORMATION
  Report Type: 
  Country: None (occurrence: None)
  Receive Date: 20080612
  Receipt Date: 20080604
  Transmission Date: 20081010
  Serious: Yes (Other)
  Sender: FDA-Public Use
  Company Number: A0732488A

PATIENT
  Age: 65 Year
  Sex: Female

DRUGS (2)
  1. TYKERB [Suspect]
     Indication: BREAST CANCER STAGE IV
     Route: 048
     Dates: start: 20070101, end: 20080101
  2. XELODA [Suspect]
     Indication: BREAST CANCER STAGE IV
     Route: 065
     Dates: start: 20070101, end: 20080101

REACTIONS (4)
  - ABASIA [None]
  - ENCEPHALOPATHY [None]
  - MOBILITY DECREASED [None]
  - NECK PAIN [None]
